FAERS Safety Report 11257867 (Version 2)
Quarter: 2015Q3

REPORT INFORMATION
  Report Type: Spontaneous
  Country: DE (occurrence: DE)
  Receive Date: 20150710
  Receipt Date: 20150724
  Transmission Date: 20151125
  Serious: Yes (Hospitalization)
  Sender: FDA-Public Use
  Company Number: DE-ACTELION-A-CH2015-120381

PATIENT
  Age: 54 Year
  Sex: Female

DRUGS (7)
  1. SALOFALK [Concomitant]
     Active Substance: MESALAMINE
  2. SPIRO COMP. [Concomitant]
     Dosage: 50 UNK, UNK
  3. ALLOPURINOL. [Concomitant]
     Active Substance: ALLOPURINOL
  4. OXYGEN. [Concomitant]
     Active Substance: OXYGEN
     Dosage: UNK
     Dates: start: 201505
  5. OPSUMIT [Suspect]
     Active Substance: MACITENTAN
     Indication: PULMONARY ARTERIAL HYPERTENSION
     Dosage: 10 MG, QD
     Route: 048
     Dates: start: 20150510
  6. NEBIVOLOL. [Concomitant]
     Active Substance: NEBIVOLOL
     Dosage: 5 UNK, UNK
  7. PANTOZOL [Concomitant]
     Active Substance: PANTOPRAZOLE SODIUM

REACTIONS (13)
  - Dizziness [Recovered/Resolved]
  - Dyspnoea [Unknown]
  - Hypercapnia [Unknown]
  - Somnolence [Recovered/Resolved]
  - Facial paresis [Recovered/Resolved]
  - General physical health deterioration [Recovered/Resolved]
  - Acidosis [Unknown]
  - Organising pneumonia [Unknown]
  - Cerebral ischaemia [Recovered/Resolved]
  - Dysarthria [Recovered/Resolved]
  - Increased bronchial secretion [Unknown]
  - Subarachnoid haemorrhage [Recovered/Resolved]
  - Hemiparesis [Recovered/Resolved]

NARRATIVE: CASE EVENT DATE: 20150619
